FAERS Safety Report 5111196-0 (Version None)
Quarter: 2006Q3

REPORT INFORMATION
  Report Type: 
  Country: None (occurrence: None)
  Receive Date: 20060920
  Receipt Date: 20060920
  Transmission Date: 20061208
  Serious: Yes (Life-Threatening, Hospitalization)
  Sender: FDA-Public Use
  Company Number: None

PATIENT
  Age: 60 Year
  Sex: Male
  Weight: 77.1115 kg

DRUGS (2)
  1. ERBITUX [Suspect]
     Indication: NEOPLASM MALIGNANT
     Dosage: 792 MG X 1 IV
     Route: 042
     Dates: start: 20060824
  2. ERBITUX [Suspect]
     Indication: NEOPLASM MALIGNANT
     Dosage: 792 MG X 1 IV
     Route: 042
     Dates: start: 20060912

REACTIONS (1)
  - ANAPHYLACTOID REACTION [None]
